FAERS Safety Report 8546084-0 (Version None)
Quarter: 2012Q3

REPORT INFORMATION
  Report Type: 
  Country: None (occurrence: None)
  Receive Date: 20120727
  Receipt Date: 20111207
  Transmission Date: 20120928
  Serious: No
  Sender: FDA-Public Use
  Company Number: US-ASTRAZENECA-2011SE74388

PATIENT
  Age: 32 Year
  Sex: Female
  Weight: 77.1 kg

DRUGS (9)
  1. SEROQUEL [Suspect]
     Route: 048
  2. SEROQUEL [Suspect]
     Route: 048
     Dates: start: 20111128
  3. LITHIUM CARBONATE [Concomitant]
     Indication: BIPOLAR DISORDER
  4. SEROQUEL [Suspect]
     Indication: BIPOLAR DISORDER
     Dosage: 600-800MG
     Route: 048
  5. LAMICTAL [Concomitant]
     Indication: BIPOLAR DISORDER
  6. VIBANSE [Concomitant]
     Indication: ATTENTION DEFICIT/HYPERACTIVITY DISORDER
  7. SEROQUEL [Suspect]
     Route: 048
  8. SEROQUEL [Suspect]
     Route: 048
     Dates: start: 20111128
  9. SEROQUEL [Suspect]
     Indication: PSYCHOTIC DISORDER
     Dosage: 600-800MG
     Route: 048

REACTIONS (4)
  - DIZZINESS [None]
  - ILL-DEFINED DISORDER [None]
  - VERTIGO [None]
  - SEDATION [None]
